FAERS Safety Report 7359433-6 (Version None)
Quarter: 2011Q1

REPORT INFORMATION
  Report Type: 
  Country: None (occurrence: None)
  Receive Date: 20110317
  Receipt Date: 20091201
  Transmission Date: 20110831
  Serious: No
  Sender: FDA-Public Use
  Company Number: US-PFIZER INC-2009275215

PATIENT
  Sex: Male
  Weight: 67.6 kg

DRUGS (2)
  1. AMLODIPINE BESYLATE [Suspect]
     Indication: BLOOD PRESSURE ABNORMAL
     Dosage: 5 MG, 1X/DAY
     Dates: start: 20090101
  2. NORVASC [Suspect]
     Indication: BLOOD PRESSURE ABNORMAL

REACTIONS (1)
  - BLOOD PRESSURE INADEQUATELY CONTROLLED [None]
